FAERS Safety Report 5640237-7 (Version None)
Quarter: 2008Q1

REPORT INFORMATION
  Report Type: 
  Country: None (occurrence: None)
  Receive Date: 20080227
  Receipt Date: 20080215
  Transmission Date: 20080703
  Serious: No
  Sender: FDA-Public Use
  Company Number: US-BAXTER-2008BH001200

PATIENT
  Age: 74 Year
  Sex: Female
  Weight: 81 kg

DRUGS (8)
  1. HEPARIN SODIUM [Suspect]
     Indication: PROPHYLAXIS
     Dosage: DOSE UNIT:CUBIC CENTIMETER
     Route: 065
     Dates: start: 20070701
  2. DIANEAL [Concomitant]
     Indication: RENAL FAILURE
     Route: 033
  3. COREG [Concomitant]
     Indication: CARDIAC DISORDER
     Dosage: DOSE UNIT:UNKNOWN
     Route: 048
  4. ISOSORB [Concomitant]
     Indication: CARDIAC DISORDER
     Dosage: DOSE UNIT:UNKNOWN
     Route: 048
  5. LANTUS [Concomitant]
     Indication: DIABETES MELLITUS
     Route: 058
  6. LANTUS [Concomitant]
     Route: 058
  7. LANTUS [Concomitant]
     Dosage: DOSE UNIT:UNKNOWN
     Route: 058
  8. CALCITRIOL [Concomitant]
     Indication: RENAL DISORDER
     Dosage: DOSE UNIT:UNKNOWN
     Route: 048

REACTIONS (11)
  - ABDOMINAL DISTENSION [None]
  - ABDOMINAL PAIN UPPER [None]
  - ANXIETY [None]
  - ARTHRALGIA [None]
  - ASTHENIA [None]
  - CHEST DISCOMFORT [None]
  - DIARRHOEA [None]
  - HEADACHE [None]
  - LACRIMATION INCREASED [None]
  - NAUSEA [None]
  - VOMITING [None]
